FAERS Safety Report 25878587 (Version 1)
Quarter: 2025Q4

REPORT INFORMATION
  Report Type: Spontaneous
  Country: US (occurrence: US)
  Receive Date: 20251003
  Receipt Date: 20251003
  Transmission Date: 20260118
  Serious: Yes (Hospitalization, Other)
  Sender: AMGEN
  Company Number: US-AMGEN-USASP2025191868

PATIENT

DRUGS (1)
  1. PREDNISONE [Suspect]
     Active Substance: PREDNISONE
     Indication: Immunosuppressant drug therapy
     Dosage: UNK
     Route: 065

REACTIONS (5)
  - Post procedural haemorrhage [Unknown]
  - Post procedural infection [Unknown]
  - Heart transplant rejection [Unknown]
  - Cardiovascular disorder [Unknown]
  - Left ventricular dysfunction [Unknown]
